FAERS Safety Report 5934961-6 (Version None)
Quarter: 2008Q4

REPORT INFORMATION
  Report Type: 
  Country: None (occurrence: None)
  Receive Date: 20081028
  Receipt Date: 20081018
  Transmission Date: 20090506
  Serious: Yes (Other)
  Sender: FDA-Public Use
  Company Number: CHPA2008US17831

PATIENT
  Age: 60 Year
  Sex: Female

DRUGS (2)
  1. GAS-X (NCH) (SIMETHICONE) UNKNOWN [Suspect]
     Indication: FLATULENCE
     Dosage: ORAL
     Route: 048
     Dates: start: 20030101
  2. GAS-X EXTSTR CHEWABLE TABS CHERRY CREME (NCH) (SIMETHICONE) CHEWABLE T [Suspect]
     Indication: FLATULENCE
     Dosage: 1-2 DF, PRN, ORAL
     Route: 048

REACTIONS (2)
  - HYPERTENSION [None]
  - STRESS [None]
